FAERS Safety Report 4433281-9 (Version None)
Quarter: 2004Q3

REPORT INFORMATION
  Report Type: 
  Country: None (occurrence: None)
  Receive Date: 20040824
  Receipt Date: 20040810
  Transmission Date: 20050211
  Serious: Yes (Hospitalization, Other)
  Sender: FDA-Public Use
  Company Number: 2004RL000009

PATIENT
  Age: 56 Year
  Sex: Male

DRUGS (1)
  1. RYTHMOL [Suspect]
     Indication: VENTRICULAR EXTRASYSTOLES
     Dosage: 1 DF;QD;PO
     Route: 048
     Dates: end: 20040413

REACTIONS (10)
  - ATRIOVENTRICULAR BLOCK [None]
  - BRADYCARDIA [None]
  - CARDIOGENIC SHOCK [None]
  - CIRCULATORY COLLAPSE [None]
  - COMA [None]
  - CONVULSION [None]
  - DIALYSIS [None]
  - HEPATIC FAILURE [None]
  - OVERDOSE [None]
  - RENAL FAILURE [None]
